FAERS Safety Report 5481665-2 (Version None)
Quarter: 2007Q4

REPORT INFORMATION
  Report Type: 
  Country: None (occurrence: None)
  Receive Date: 20071010
  Receipt Date: 20070921
  Transmission Date: 20080405
  Serious: Yes (Hospitalization, Other)
  Sender: FDA-Public Use
  Company Number: FR-BRISTOL-MYERS SQUIBB COMPANY-13907068

PATIENT
  Age: 70 Year
  Sex: Female

DRUGS (3)
  1. CETUXIMAB [Suspect]
     Indication: SQUAMOUS CELL CARCINOMA OF THE CERVIX
     Dosage: 400 MG/M2 WAS ADMINISTERED ONCE FROM 28-JUN-2007
     Route: 042
     Dates: start: 20070628, end: 20070816
  2. CISPLATIN [Suspect]
     Indication: SQUAMOUS CELL CARCINOMA OF THE CERVIX
     Route: 042
     Dates: start: 20070628, end: 20070809
  3. HYCAMTIN [Suspect]
     Indication: SQUAMOUS CELL CARCINOMA OF THE CERVIX
     Dosage: REDUCED DOSE OF 0.6MG/M2 WAS ALSO ADMINISTERED
     Route: 042
     Dates: start: 20070628, end: 20070811

REACTIONS (3)
  - ANAEMIA [None]
  - FEBRILE BONE MARROW APLASIA [None]
  - THROMBOCYTOPENIA [None]
